FAERS Safety Report 5495698-3 (Version None)
Quarter: 2007Q4

REPORT INFORMATION
  Report Type: 
  Country: None (occurrence: None)
  Receive Date: 20071025
  Receipt Date: 20071015
  Transmission Date: 20080405
  Serious: Yes (Death, Hospitalization)
  Sender: FDA-Public Use
  Company Number: US-JNJFOC-20060503319

PATIENT
  Sex: Female
  Weight: 56.7 kg

DRUGS (2)
  1. REMICADE [Suspect]
     Indication: COLITIS ULCERATIVE
     Route: 042
  2. REMICADE [Suspect]
     Indication: CROHN'S DISEASE
     Route: 042

REACTIONS (5)
  - CARDIAC FAILURE CONGESTIVE [None]
  - GASTRIC DISORDER [None]
  - PNEUMONIA [None]
  - PULMONARY MYCOSIS [None]
  - RENAL FAILURE [None]
